FAERS Safety Report 4507427-8 (Version None)
Quarter: 2004Q4

REPORT INFORMATION
  Report Type: 
  Country: None (occurrence: None)
  Receive Date: 20041118
  Receipt Date: 20041104
  Transmission Date: 20050328
  Serious: Yes (Hospitalization)
  Sender: FDA-Public Use
  Company Number: 210217

PATIENT
  Age: 76 Year
  Sex: Male

DRUGS (5)
  1. RITUXAN [Suspect]
     Dosage: SEE IMAGE
     Dates: start: 20040202, end: 20040308
  2. RITUXAN [Suspect]
     Dosage: SEE IMAGE
     Dates: start: 20000101
  3. PREDNISONE [Concomitant]
  4. LASIX [Concomitant]
  5. LEVAQUIN (LEVOFLOXACIN0 [Concomitant]

REACTIONS (5)
  - ABDOMINAL DISTENSION [None]
  - COUGH [None]
  - PERICARDIAL EFFUSION [None]
  - PLEURAL EFFUSION [None]
  - WEIGHT INCREASED [None]
